FAERS Safety Report 10488643 (Version 1)
Quarter: 2014Q3

REPORT INFORMATION
  Report Type: Spontaneous
  Country: US (occurrence: None)
  Receive Date: 20140930
  Receipt Date: 20140930
  Transmission Date: 20150326
  Serious: Yes (Other)
  Sender: FDA-Public Use
  Company Number: 153745

PATIENT
  Age: 26 Year
  Sex: Male
  Weight: 77 kg

DRUGS (2)
  1. BLEOMYCIN [Suspect]
     Active Substance: BLEOMYCIN SULFATE
     Indication: TESTIS CANCER
  2. CISPLATIN INJ. 50MG/59ML - BEDFORD LABS, INC. [Suspect]
     Active Substance: CISPLATIN
     Indication: TESTIS CANCER

REACTIONS (2)
  - Pulmonary embolism [None]
  - Cerebrovascular accident [None]
